FAERS Safety Report 20772147 (Version 1)
Quarter: 2022Q2

REPORT INFORMATION
  Report Type: Spontaneous
  Country: US (occurrence: US)
  Receive Date: 20220502
  Receipt Date: 20220502
  Transmission Date: 20220721
  Serious: No
  Sender: FDA-Public Use
  Company Number: US-Blueprint Medicines Corporation-64

PATIENT
  Sex: Female

DRUGS (1)
  1. AYVAKIT [Suspect]
     Active Substance: AVAPRITINIB
     Indication: Systemic mastocytosis
     Route: 048
     Dates: start: 20220129

REACTIONS (5)
  - Joint stiffness [Unknown]
  - Alopecia [Unknown]
  - Swelling [Unknown]
  - Nausea [Unknown]
  - Product dose omission issue [Unknown]
